FAERS Safety Report 24460676 (Version 1)
Quarter: 2024Q4

REPORT INFORMATION
  Report Type: Other
  Country: US (occurrence: US)
  Receive Date: 20241018
  Receipt Date: 20241018
  Transmission Date: 20250114
  Serious: Yes (Other)
  Sender: ALVOGEN
  Company Number: US-ALVOGEN-2024095679

PATIENT
  Age: 64 Year
  Sex: Female

DRUGS (8)
  1. DOXORUBICIN [Suspect]
     Active Substance: DOXORUBICIN
     Indication: Hormone receptor positive breast cancer
     Dosage: 60 MG/M2 IN EVERY TWO WEEKS?CYCLE 1
  2. DOXORUBICIN [Suspect]
     Active Substance: DOXORUBICIN
     Indication: Hormone receptor positive breast cancer
     Dosage: 60 MG/M2 IN EVERY TWO WEEKS?CYCLE 2
  3. DOXORUBICIN [Suspect]
     Active Substance: DOXORUBICIN
     Indication: Hormone receptor positive breast cancer
     Dosage: 60 MG/M2 IN EVERY TWO WEEKS?CYCLE 3
  4. DOXORUBICIN [Suspect]
     Active Substance: DOXORUBICIN
     Indication: Hormone receptor positive breast cancer
     Dosage: 60 MG/M2 IN EVERY TWO WEEKS?CYCLE 4
  5. CYCLOPHOSPHAMIDE [Suspect]
     Active Substance: CYCLOPHOSPHAMIDE
     Indication: Hormone receptor positive breast cancer
     Dosage: 600 MG/M2 IN EVERY TWO WEEKS?CYCLE 1
  6. CYCLOPHOSPHAMIDE [Suspect]
     Active Substance: CYCLOPHOSPHAMIDE
     Indication: Hormone receptor positive breast cancer
     Dosage: 600 MG/M2 IN EVERY TWO WEEKS?CYCLE 2
  7. CYCLOPHOSPHAMIDE [Suspect]
     Active Substance: CYCLOPHOSPHAMIDE
     Indication: Hormone receptor positive breast cancer
     Dosage: 600 MG/M2 IN EVERY TWO WEEKS?CYCLE 3
  8. CYCLOPHOSPHAMIDE [Suspect]
     Active Substance: CYCLOPHOSPHAMIDE
     Indication: Hormone receptor positive breast cancer
     Dosage: 600 MG/M2 IN EVERY TWO WEEKS?CYCLE 4

REACTIONS (2)
  - Myocardial infarction [Unknown]
  - QRS axis abnormal [Unknown]
